FAERS Safety Report 18344915 (Version 1)
Quarter: 2020Q4

REPORT INFORMATION
  Report Type: Spontaneous
  Country: BR (occurrence: BR)
  Receive Date: 20201005
  Receipt Date: 20201005
  Transmission Date: 20210114
  Serious: Yes (Other)
  Sender: FDA-Public Use
  Company Number: BR-PFIZER INC-2020380579

PATIENT
  Age: 72 Year
  Sex: Female

DRUGS (2)
  1. LYRICA [Suspect]
     Active Substance: PREGABALIN
     Indication: SPINAL DISORDER
     Dosage: 25 MG DAILY (01 CAPSULE A DAY)
  2. LYRICA [Suspect]
     Active Substance: PREGABALIN
     Indication: NEUROPATHY PERIPHERAL
     Dosage: 75 MG 1X/DAY (1 CAPSULE PER DAY AT NIGHT)

REACTIONS (10)
  - Spinal disorder [Unknown]
  - Neuropathy peripheral [Unknown]
  - Pain in extremity [Unknown]
  - Fall [Unknown]
  - Somnolence [Unknown]
  - Dizziness [Unknown]
  - Trigger finger [Unknown]
  - Lung neoplasm malignant [Recovered/Resolved]
  - Thoracic vertebral fracture [Unknown]
  - Rib fracture [Unknown]

NARRATIVE: CASE EVENT DATE: 2013
